FAERS Safety Report 21126166 (Version 1)
Quarter: 2022Q3

REPORT INFORMATION
  Report Type: Spontaneous
  Country: US (occurrence: None)
  Receive Date: 20220724
  Receipt Date: 20220724
  Transmission Date: 20221027
  Serious: Yes (Disabling)
  Sender: FDA-Public Use
  Company Number: None

PATIENT
  Age: 65 Year
  Sex: Male
  Weight: 103.5 kg

DRUGS (1)
  1. CIPROFLOXACIN [Suspect]
     Active Substance: CIPROFLOXACIN
     Indication: Biliary tract infection
     Dates: start: 20220706

REACTIONS (5)
  - Pain in extremity [None]
  - Tendon disorder [None]
  - Peripheral swelling [None]
  - Hypoaesthesia [None]
  - Tendonitis [None]

NARRATIVE: CASE EVENT DATE: 20220707
